FAERS Safety Report 10707574 (Version 1)
Quarter: 2015Q1

REPORT INFORMATION
  Report Type: Spontaneous
  Country: SE (occurrence: SE)
  Receive Date: 20150113
  Receipt Date: 20150113
  Transmission Date: 20150721
  Serious: Yes (Other)
  Sender: FDA-Public Use
  Company Number: SE-MERCK-1501SWE002168

PATIENT
  Age: 13 Year
  Sex: Male

DRUGS (1)
  1. AERIUS [Suspect]
     Active Substance: DESLORATADINE
     Dates: start: 2014, end: 2014

REACTIONS (2)
  - Dizziness [Recovered/Resolved]
  - Hallucination, visual [Recovered/Resolved]

NARRATIVE: CASE EVENT DATE: 2014
